FAERS Safety Report 14947012 (Version 1)
Quarter: 2018Q2

REPORT INFORMATION
  Report Type: Report from Study
  Country: JP (occurrence: JP)
  Receive Date: 20180529
  Receipt Date: 20180529
  Transmission Date: 20180711
  Serious: Yes (Death, Hospitalization)
  Sender: FDA-Public Use
  Company Number: JP-JNJFOC-20180117662

PATIENT
  Age: 75 Year
  Sex: Male
  Weight: 50.9 kg

DRUGS (15)
  1. XARELTO [Suspect]
     Active Substance: RIVAROXABAN
     Indication: DEEP VEIN THROMBOSIS
     Route: 048
     Dates: start: 20170922, end: 20170927
  2. ORGOTEIN [Concomitant]
     Active Substance: ORGOTEIN
     Route: 048
     Dates: end: 20171225
  3. URSO [Concomitant]
     Active Substance: URSODIOL
     Indication: PROPHYLAXIS
     Route: 048
     Dates: end: 20171214
  4. OXYCODONE [Concomitant]
     Active Substance: OXYCODONE
     Route: 048
     Dates: end: 20171218
  5. LOXOPROFEN [Concomitant]
     Active Substance: LOXOPROFEN
     Route: 061
     Dates: end: 20170925
  6. LYRICA [Concomitant]
     Active Substance: PREGABALIN
     Route: 048
     Dates: end: 20171228
  7. ALOSENN [Concomitant]
     Active Substance: SENNA LEAF
     Route: 048
     Dates: end: 20170928
  8. MYSLEE [Concomitant]
     Active Substance: ZOLPIDEM TARTRATE
     Route: 048
     Dates: end: 20170925
  9. PREDONINE [Concomitant]
     Active Substance: PREDNISOLONE
     Route: 048
     Dates: end: 20171224
  10. MAGNESIUM CARBONATE [Concomitant]
     Active Substance: MAGNESIUM CARBONATE
     Indication: PROPHYLAXIS
     Route: 048
     Dates: end: 20170928
  11. XARELTO [Suspect]
     Active Substance: RIVAROXABAN
     Indication: DEEP VEIN THROMBOSIS
     Route: 048
     Dates: start: 20170928, end: 20171228
  12. ZYTIGA [Concomitant]
     Active Substance: ABIRATERONE ACETATE
     Route: 048
     Dates: end: 20171228
  13. MAGMITT [Concomitant]
     Active Substance: MAGNESIUM OXIDE
     Route: 048
     Dates: end: 20171228
  14. MUCOSTA [Concomitant]
     Active Substance: REBAMIPIDE
     Route: 048
     Dates: end: 20171225
  15. CELECOXIB. [Concomitant]
     Active Substance: CELECOXIB
     Route: 048
     Dates: end: 20170925

REACTIONS (4)
  - Osteorrhagia [Unknown]
  - Prostate cancer [Fatal]
  - Osteonecrosis of jaw [Recovered/Resolved]
  - Osteonecrosis of jaw [Unknown]

NARRATIVE: CASE EVENT DATE: 20170926
